FAERS Safety Report 7388191-4 (Version None)
Quarter: 2011Q2

REPORT INFORMATION
  Report Type: 
  Country: None (occurrence: None)
  Receive Date: 20110401
  Receipt Date: 20110301
  Transmission Date: 20111010
  Serious: Yes (Disabling, Other)
  Sender: FDA-Public Use
  Company Number: ES-BAYER-200935412GPV

PATIENT
  Sex: Male

DRUGS (4)
  1. INSULIN [Concomitant]
     Indication: DIABETES MELLITUS
     Route: 058
  2. NEXAVAR [Suspect]
     Indication: HEPATIC NEOPLASM MALIGNANT
     Dosage: 400 MG, BID
     Route: 048
     Dates: start: 20090716, end: 20091002
  3. PROPRANOLOL [Concomitant]
     Indication: HAEMORRHAGE PROPHYLAXIS
     Dosage: 280 MG (DAILY DOSE), , ORAL
     Route: 048
  4. ISOSORBIDE MONONITRATE [Concomitant]
     Indication: HAEMORRHAGE PROPHYLAXIS
     Dosage: 40 MG (DAILY DOSE), , ORAL
     Route: 048

REACTIONS (6)
  - MYOSITIS [None]
  - MYALGIA [None]
  - ABASIA [None]
  - ERYTHEMA [None]
  - OEDEMA PERIPHERAL [None]
  - PAIN IN EXTREMITY [None]
